FAERS Safety Report 6985511-7 (Version None)
Quarter: 2010Q3

REPORT INFORMATION
  Report Type: 
  Country: None (occurrence: None)
  Receive Date: 20100915
  Receipt Date: 20100907
  Transmission Date: 20110219
  Serious: Yes (Other)
  Sender: FDA-Public Use
  Company Number: B0674649A

PATIENT
  Age: 61 Year
  Sex: Female

DRUGS (2)
  1. TYVERB [Suspect]
     Indication: BREAST CANCER
     Dosage: 1250MG PER DAY
     Route: 065
     Dates: start: 20100401
  2. XELODA [Suspect]
     Indication: BREAST CANCER
     Dosage: 2000MGM2 PER DAY
     Route: 065

REACTIONS (6)
  - ABDOMINAL PAIN UPPER [None]
  - HAEMATOTOXICITY [None]
  - NAUSEA [None]
  - NEUROTOXICITY [None]
  - SKIN TOXICITY [None]
  - VOMITING [None]
